FAERS Safety Report 21189068 (Version 3)
Quarter: 2022Q4

REPORT INFORMATION
  Report Type: Report from Study
  Country: AR (occurrence: AR)
  Receive Date: 20220809
  Receipt Date: 20221101
  Transmission Date: 20230113
  Serious: No
  Sender: FDA-Public Use
  Company Number: AR-NOVARTISPH-NVSC2020AR028434

PATIENT
  Age: 71 Year
  Sex: Female

DRUGS (1)
  1. COSENTYX [Suspect]
     Active Substance: SECUKINUMAB
     Indication: Psoriatic arthropathy
     Dosage: 150 MG, QMO
     Route: 058
     Dates: start: 20190319, end: 20210502

REACTIONS (17)
  - Condition aggravated [Not Recovered/Not Resolved]
  - Cyst [Unknown]
  - Tendon disorder [Unknown]
  - Vitamin D decreased [Unknown]
  - Bone disorder [Unknown]
  - Gait disturbance [Not Recovered/Not Resolved]
  - Pruritus [Unknown]
  - Fall [Unknown]
  - Joint injury [Unknown]
  - Tendon injury [Unknown]
  - Arthralgia [Not Recovered/Not Resolved]
  - Psoriasis [Unknown]
  - Pain [Unknown]
  - Hypoacusis [Unknown]
  - Spinal pain [Unknown]
  - Malaise [Unknown]
  - Inappropriate schedule of product administration [Unknown]

NARRATIVE: CASE EVENT DATE: 20191001
